FAERS Safety Report 16293843 (Version 1)
Quarter: 2019Q2

REPORT INFORMATION
  Report Type: Spontaneous
  Country: US (occurrence: US)
  Receive Date: 20190509
  Receipt Date: 20190509
  Transmission Date: 20190711
  Serious: No
  Sender: FDA-Public Use
  Company Number: US-ROCHE-2102522

PATIENT
  Sex: Male

DRUGS (10)
  1. TAMSULOSIN HCL [Concomitant]
     Active Substance: TAMSULOSIN HYDROCHLORIDE
  2. ALFALFA [Concomitant]
     Active Substance: ALFALFA
  3. ASPIRIN [ACETYLSALICYLIC ACID] [Concomitant]
     Active Substance: ASPIRIN
  4. SIMVASTATIN. [Concomitant]
     Active Substance: SIMVASTATIN
  5. TRAMADOL HCL [Concomitant]
     Active Substance: TRAMADOL HYDROCHLORIDE
  6. LEVOTHYROXINE SODIUM. [Concomitant]
     Active Substance: LEVOTHYROXINE SODIUM
  7. METFORMIN HYDROCHLORIDE. [Concomitant]
     Active Substance: METFORMIN HYDROCHLORIDE
     Route: 065
  8. ESBRIET [Suspect]
     Active Substance: PIRFENIDONE
     Indication: IDIOPATHIC PULMONARY FIBROSIS
     Route: 048
     Dates: start: 201712
  9. FENOFIBRATE. [Concomitant]
     Active Substance: FENOFIBRATE
  10. LECITHIN [Concomitant]
     Active Substance: LECITHIN

REACTIONS (2)
  - Fatigue [Not Recovered/Not Resolved]
  - Decreased appetite [Recovered/Resolved]
